FAERS Safety Report 6552082-9 (Version None)
Quarter: 2010Q1

REPORT INFORMATION
  Report Type: 
  Country: None (occurrence: None)
  Receive Date: 20100120
  Receipt Date: 20100105
  Transmission Date: 20100710
  Serious: Yes (Hospitalization)
  Sender: FDA-Public Use
  Company Number: 1-21237212

PATIENT
  Age: 45 Year
  Sex: Female

DRUGS (1)
  1. OXCARBAZEPINE [Suspect]
     Indication: PARTIAL SEIZURES

REACTIONS (4)
  - BLOOD AMYLASE INCREASED [None]
  - HEPATITIS CHOLESTATIC [None]
  - LIPASE INCREASED [None]
  - LIVER INJURY [None]
